FAERS Safety Report 8507822-6 (Version None)
Quarter: 2012Q3

REPORT INFORMATION
  Report Type: 
  Country: None (occurrence: None)
  Receive Date: 20120713
  Receipt Date: 20120710
  Transmission Date: 20120928
  Serious: Yes (Death, Hospitalization)
  Sender: FDA-Public Use
  Company Number: PHHY2012NL059192

PATIENT
  Sex: Male
  Weight: 75 kg

DRUGS (6)
  1. ATORVASTATIN [Concomitant]
     Dosage: 10 MG, QD
  2. OMEPRAZOLE [Concomitant]
     Dosage: 100 MG, DAILY
  3. ACENOCOUMAROL [Concomitant]
     Dosage: 1 MG, QD
  4. DIGOXIN [Concomitant]
     Dosage: 0.25 MG, QD
  5. TOLTERODINE TARTRATE [Concomitant]
     Dosage: 2 MG, QD
  6. EXELON [Suspect]
     Dosage: .5 MG CAPSULE IN THE MORNINGS AND 6 MG CAPSULE IN THE EVENINGS
     Dates: end: 20120519

REACTIONS (7)
  - SHOCK [None]
  - SYSTEMIC INFLAMMATORY RESPONSE SYNDROME [None]
  - HAEMODYNAMIC INSTABILITY [None]
  - PANCREATITIS NECROTISING [None]
  - RESPIRATORY FAILURE [None]
  - RENAL FAILURE [None]
  - DEATH [None]
